FAERS Safety Report 13873755 (Version 1)
Quarter: 2017Q3

REPORT INFORMATION
  Report Type: Spontaneous
  Country: NL (occurrence: NL)
  Receive Date: 20170816
  Receipt Date: 20170816
  Transmission Date: 20171127
  Serious: Yes (Hospitalization, Other)
  Sender: FDA-Public Use
  Company Number: NL-JNJFOC-20170809390

PATIENT

DRUGS (1)
  1. METHYLPHENIDATE HYDROCHLORIDE. [Suspect]
     Active Substance: METHYLPHENIDATE HYDROCHLORIDE
     Indication: PRODUCT USED FOR UNKNOWN INDICATION
     Route: 065

REACTIONS (12)
  - Hypertension [Unknown]
  - Mydriasis [Unknown]
  - Nausea [Unknown]
  - Tremor [Unknown]
  - Tachypnoea [Unknown]
  - Hallucination [Unknown]
  - Psychotic disorder [Unknown]
  - Intentional product misuse [Unknown]
  - Headache [Unknown]
  - Hospitalisation [Unknown]
  - Agitation [Unknown]
  - Tachycardia [Unknown]
